FAERS Safety Report 8775581 (Version 2)
Quarter: 2012Q4

REPORT INFORMATION
  Report Type: Report from Study
  Country: RO (occurrence: RO)
  Receive Date: 20120910
  Receipt Date: 20120926
  Transmission Date: 20130627
  Serious: Yes (Life-Threatening, Hospitalization)
  Sender: FDA-Public Use
  Company Number: RO-SANOFI-AVENTIS-2012SA048275

PATIENT
  Age: 77 Year
  Sex: Male
  Weight: 73 kg

DRUGS (8)
  1. CABAZITAXEL [Suspect]
     Indication: PROSTATE CANCER METASTATIC
     Route: 042
     Dates: start: 20120227, end: 20120227
  2. CABAZITAXEL [Suspect]
     Indication: PROSTATE CANCER METASTATIC
     Route: 042
     Dates: start: 20120614, end: 20120614
  3. PREDNISONE [Suspect]
     Indication: PROSTATE CANCER METASTATIC
     Route: 048
     Dates: start: 20120227, end: 20120703
  4. INDAPAMIDE [Concomitant]
     Route: 048
     Dates: start: 2000
  5. KETOPROFEN [Concomitant]
     Route: 048
     Dates: start: 20111215
  6. INSULIN [Concomitant]
     Route: 058
     Dates: start: 20100602
  7. OMEPRAZOLE [Concomitant]
     Route: 048
     Dates: start: 20120227
  8. FERROUS SULFATE [Concomitant]
     Route: 048
     Dates: start: 20120403

REACTIONS (1)
  - Gastrointestinal haemorrhage [Recovered/Resolved]
